FAERS Safety Report 10248365 (Version 1)
Quarter: 2014Q2

REPORT INFORMATION
  Report Type: Spontaneous
  Country: CH (occurrence: CH)
  Receive Date: 20140620
  Receipt Date: 20140620
  Transmission Date: 20141212
  Serious: Yes (Hospitalization, Other)
  Sender: FDA-Public Use
  Company Number: CH-AMGEN INC.-CHESP2014046000

PATIENT
  Age: 68 Year
  Sex: Male

DRUGS (3)
  1. ENBREL [Suspect]
     Indication: PRODUCT USED FOR UNKNOWN INDICATION
     Dosage: 50 MG, WEEKLY
     Route: 058
     Dates: start: 201308
  2. ARAVA [Suspect]
     Indication: POLYARTHRITIS
     Dosage: 10 MG, 1X/DAY
     Route: 048
     Dates: start: 201401, end: 201404
  3. BRUFEN                             /00109201/ [Concomitant]
     Indication: POLYARTHRITIS
     Dosage: 400 MG, AS NEEDED
     Route: 048

REACTIONS (1)
  - Subacute cutaneous lupus erythematosus [Recovering/Resolving]
